FAERS Safety Report 25106146 (Version 1)
Quarter: 2025Q1

REPORT INFORMATION
  Report Type: Report from Study
  Country: EG (occurrence: EG)
  Receive Date: 20250321
  Receipt Date: 20250321
  Transmission Date: 20250409
  Serious: Yes (Other)
  Sender: NOVARTIS
  Company Number: EG-002147023-NVSC2025EG032442

PATIENT
  Sex: Female
  Weight: 68 kg

DRUGS (4)
  1. KISQALI [Suspect]
     Active Substance: RIBOCICLIB
     Indication: Breast cancer
     Dosage: (200 MG) 3 DOSAGE FORM, QD (ONCE DAILY FOR 21 DAYS AND 1 WEEK OFF)
     Route: 048
  2. KISQALI [Suspect]
     Active Substance: RIBOCICLIB
     Dosage: (200 MG), 3 DOSAGE FORM, QMO (ONCE DAILY FOR 21 DAYS AND 1 WEEK OFF)
     Route: 048
  3. KISQALI [Suspect]
     Active Substance: RIBOCICLIB
     Dosage: (200 MG) 2 DOSAGE FORM, QD (ONCE DAILY FOR 21 DAYS AND 1 WEEK OFF)
     Route: 048
  4. ARIMIDEX [Concomitant]
     Active Substance: ANASTROZOLE
     Indication: Hormone level abnormal
     Dosage: TABLET, 1 DOSAGE FORM (1 MG), QD
     Route: 048

REACTIONS (3)
  - Pneumonitis [Recovered/Resolved]
  - Influenza [Recovered/Resolved]
  - Off label use [Unknown]
